FAERS Safety Report 7070097-1 (Version None)
Quarter: 2010Q4

REPORT INFORMATION
  Report Type: 
  Country: None (occurrence: None)
  Receive Date: 20101028
  Receipt Date: 20100827
  Transmission Date: 20110411
  Serious: No
  Sender: FDA-Public Use
  Company Number: US-WYE-H16956310

PATIENT
  Age: 63 Year
  Sex: Female
  Weight: 90.8 kg

DRUGS (4)
  1. ADVIL [Suspect]
     Indication: ARTHRALGIA
     Dosage: 2 CAPSULES AS NEEDED
     Route: 048
     Dates: start: 20100401, end: 20100815
  2. ZESTRIL [Concomitant]
  3. HYDROCHLOROTHIAZIDE [Concomitant]
  4. METOPROLOL [Concomitant]

REACTIONS (3)
  - BURNING SENSATION [None]
  - ORAL DISCOMFORT [None]
  - PRODUCT QUALITY ISSUE [None]
